FAERS Safety Report 19239104 (Version 2)
Quarter: 2021Q2

REPORT INFORMATION
  Report Type: Spontaneous
  Country: US (occurrence: US)
  Receive Date: 20210510
  Receipt Date: 20210618
  Transmission Date: 20210717
  Serious: No
  Sender: FDA-Public Use
  Company Number: US-JNJFOC-20210502426

PATIENT
  Age: 87 Year
  Sex: Male

DRUGS (1)
  1. NIZORAL [Suspect]
     Active Substance: KETOCONAZOLE
     Indication: PRODUCT USED FOR UNKNOWN INDICATION
     Route: 061

REACTIONS (5)
  - Discomfort [Unknown]
  - Eye pain [Unknown]
  - Expired product administered [Unknown]
  - Eye irritation [Unknown]
  - Product label issue [Unknown]

NARRATIVE: CASE EVENT DATE: 20210501
